FAERS Safety Report 11836333 (Version 2)
Quarter: 2015Q4

REPORT INFORMATION
  Report Type: Spontaneous
  Country: US (occurrence: US)
  Receive Date: 20151215
  Receipt Date: 20151229
  Transmission Date: 20160305
  Serious: Yes (Hospitalization, Other)
  Sender: FDA-Public Use
  Company Number: US-PFIZER INC-2015431368

PATIENT
  Age: 51 Year
  Sex: Female

DRUGS (1)
  1. IBRANCE [Suspect]
     Active Substance: PALBOCICLIB
     Indication: BREAST CANCER
     Dosage: 100 MG, UNK
     Dates: start: 20150403, end: 2015

REACTIONS (4)
  - Blood disorder [Unknown]
  - Oral mucosal blistering [Unknown]
  - Decreased appetite [Unknown]
  - Seizure [Unknown]

NARRATIVE: CASE EVENT DATE: 2015
